FAERS Safety Report 7448125-0 (Version None)
Quarter: 2011Q2

REPORT INFORMATION
  Report Type: 
  Country: None (occurrence: None)
  Receive Date: 20110429
  Receipt Date: 20100305
  Transmission Date: 20111010
  Serious: No
  Sender: FDA-Public Use
  Company Number: US-ASTRAZENECA-2010SE05380

PATIENT
  Sex: Female
  Weight: 50.8 kg

DRUGS (9)
  1. SINGULAIR [Concomitant]
  2. QVAR 40 [Concomitant]
  3. PAXIL [Concomitant]
  4. ALVUTEROL [Concomitant]
  5. NEXIUM [Suspect]
     Indication: GASTROOESOPHAGEAL REFLUX DISEASE
     Route: 048
     Dates: start: 20010101
  6. NEXIUM [Suspect]
     Route: 048
     Dates: start: 20091226
  7. COUMADIN [Concomitant]
  8. LASIX [Concomitant]
  9. XOPENEX [Concomitant]

REACTIONS (2)
  - DYSPEPSIA [None]
  - PRODUCT COUNTERFEIT [None]
